FAERS Safety Report 17461841 (Version 4)
Quarter: 2024Q2

REPORT INFORMATION
  Report Type: Report from Study
  Country: CL (occurrence: CL)
  Receive Date: 20200226
  Receipt Date: 20240601
  Transmission Date: 20240716
  Serious: Yes (Hospitalization, Other)
  Sender: FDA-Public Use
  Company Number: CL-ABBVIE-20K-034-3289447-00

PATIENT
  Age: 57 Year
  Sex: Female

DRUGS (13)
  1. HUMIRA [Suspect]
     Active Substance: ADALIMUMAB
     Indication: Rheumatoid arthritis
     Dosage: FORM STRENGTH: 40 MILLIGRAM
     Route: 058
     Dates: start: 20190418
  2. TRAMADOL [Concomitant]
     Active Substance: TRAMADOL\TRAMADOL HYDROCHLORIDE
     Indication: Product used for unknown indication
  3. Spiron [Concomitant]
     Indication: Product used for unknown indication
  4. Cabral [Concomitant]
     Indication: Product used for unknown indication
  5. TRAVIATA [Concomitant]
     Indication: Product used for unknown indication
  6. Artrotin [Concomitant]
     Indication: Product used for unknown indication
  7. OMEPRAZOLE [Concomitant]
     Active Substance: DONEPEZIL HYDROCHLORIDE\OMEPRAZOLE\OMEPRAZOLE MAGNESIUM
     Indication: Product used for unknown indication
  8. SUPRACALM [Concomitant]
     Indication: Product used for unknown indication
  9. FOLISANIN [Concomitant]
     Indication: Product used for unknown indication
  10. Zodol [Concomitant]
     Indication: Product used for unknown indication
  11. Tradox [Concomitant]
     Indication: Bipolar disorder
  12. CARBAMAZEPINE [Concomitant]
     Active Substance: CARBAMAZEPINE
     Indication: Product used for unknown indication
  13. BUXON [Concomitant]
     Indication: Product used for unknown indication

REACTIONS (9)
  - Gait disturbance [Unknown]
  - Musculoskeletal disorder [Not Recovered/Not Resolved]
  - Pain in extremity [Unknown]
  - Foot deformity [Not Recovered/Not Resolved]
  - Post procedural complication [Not Recovered/Not Resolved]
  - Musculoskeletal disorder [Recovering/Resolving]
  - Pain in extremity [Not Recovered/Not Resolved]
  - Medical device implantation [Unknown]
  - Device fastener issue [Unknown]

NARRATIVE: CASE EVENT DATE: 20200124
